FAERS Safety Report 8973221 (Version 2)
Quarter: 2013Q1

REPORT INFORMATION
  Report Type: Spontaneous
  Country: CA (occurrence: CA)
  Receive Date: 20121219
  Receipt Date: 20130304
  Transmission Date: 20140127
  Serious: No
  Sender: FDA-Public Use
  Company Number: CA-009507513-1212CAN007110

PATIENT
  Sex: 0

DRUGS (1)
  1. SAPHRIS [Suspect]
     Indication: PRODUCT USED FOR UNKNOWN INDICATION
     Dosage: UNK
     Route: 060
     Dates: start: 2012, end: 2012

REACTIONS (4)
  - Pruritus [Unknown]
  - Pruritus [Unknown]
  - Rash [Unknown]
  - Eczema [Unknown]
